FAERS Safety Report 18331932 (Version 1)
Quarter: 2020Q3

REPORT INFORMATION
  Report Type: Other
  Country: FR (occurrence: FR)
  Receive Date: 20200930
  Receipt Date: 20200930
  Transmission Date: 20201103
  Serious: Yes (Disabling, Other)
  Sender: FDA-Public Use
  Company Number: FR-VALIDUS PHARMACEUTICALS LLC-FR-2020VAL000790

PATIENT

DRUGS (7)
  1. FUROSEMIDE. [Suspect]
     Active Substance: FUROSEMIDE
     Indication: HYPERTENSION
     Dosage: 20 MG, QD
     Route: 048
     Dates: end: 20191024
  2. IMOVANE [Suspect]
     Active Substance: ZOPICLONE
     Indication: INSOMNIA
     Dosage: UNK
     Route: 048
     Dates: end: 20191024
  3. CORDARONE [Suspect]
     Active Substance: AMIODARONE HYDROCHLORIDE
     Indication: ARRHYTHMIA
     Dosage: 200 MG, QD
     Route: 048
     Dates: end: 20191024
  4. FLUINDIONE [Suspect]
     Active Substance: FLUINDIONE
     Indication: PRODUCT USED FOR UNKNOWN INDICATION
     Dosage: 0.5 DF, QD
     Route: 048
     Dates: end: 20191023
  5. OXAZEPAM. [Suspect]
     Active Substance: OXAZEPAM
     Indication: ANXIETY
     Dosage: UNK
     Route: 048
     Dates: end: 20191024
  6. INIPOMP [Suspect]
     Active Substance: PANTOPRAZOLE SODIUM
     Indication: GASTROOESOPHAGEAL REFLUX DISEASE
     Dosage: 20 MG, UNK
     Route: 048
     Dates: end: 20191024
  7. DIGOXIN. [Suspect]
     Active Substance: DIGOXIN
     Indication: CARDIAC FAILURE
     Dosage: 1 DF, QD
     Route: 048
     Dates: end: 20191024

REACTIONS (2)
  - Hemiplegia [Recovered/Resolved with Sequelae]
  - Cerebral haemorrhage [Recovered/Resolved with Sequelae]

NARRATIVE: CASE EVENT DATE: 20191024
